FAERS Safety Report 5639058-0 (Version None)
Quarter: 2008Q1

REPORT INFORMATION
  Report Type: 
  Country: None (occurrence: None)
  Receive Date: 20080222
  Receipt Date: 20080208
  Transmission Date: 20080703
  Serious: Yes (Hospitalization)
  Sender: FDA-Public Use
  Company Number: MEDI-0006545

PATIENT
  Age: 11 Month
  Sex: Female
  Weight: 8.7 kg

DRUGS (9)
  1. SYNAGIS [Suspect]
     Indication: ANTIVIRAL PROPHYLAXIS
     Dosage: 130 MG, INTRAMUSCULAR
     Route: 030
     Dates: start: 20080104, end: 20080104
  2. PULMICORT [Concomitant]
  3. SALBUTAMOL        (SALBUTAMOL) [Concomitant]
  4. VENTOLIN [Concomitant]
  5. PANCRELIPASE                      (PANCRELIPASE) [Concomitant]
  6. RANITIDINE [Concomitant]
  7. FERROUS SULPHATE           (FERROUS SULPHATE) [Concomitant]
  8. POLY-VI-SOL (ERGOCALCIFEROL, ASCORBIC ACID, THIAMINE, RETINOL, RIBOFLA [Concomitant]
  9. VITAMIN E [Concomitant]

REACTIONS (8)
  - ADENOVIRUS INFECTION [None]
  - COUGH [None]
  - DEHYDRATION [None]
  - DIARRHOEA [None]
  - DYSPNOEA [None]
  - LOWER RESPIRATORY TRACT INFECTION [None]
  - STAPHYLOCOCCAL INFECTION [None]
  - VOMITING [None]
